FAERS Safety Report 26044410 (Version 1)
Quarter: 2025Q4

REPORT INFORMATION
  Report Type: Spontaneous
  Country: EU (occurrence: EU)
  Receive Date: 20251114
  Receipt Date: 20251114
  Transmission Date: 20260117
  Serious: Yes (Other)
  Sender: TORRENT PHARMA INC.
  Company Number: None

PATIENT
  Sex: Female

DRUGS (7)
  1. PANTOPRAZOLE [Suspect]
     Active Substance: PANTOPRAZOLE
     Indication: Product used for unknown indication
     Dosage: MOTHER DOSE: AT DOSE OF 20 MILLIGRAM VIA ORAL ROUTE FORM DEC-2023 TO SEP-24.
     Route: 064
  2. SERTRALINE [Suspect]
     Active Substance: SERTRALINE HYDROCHLORIDE
     Indication: Product used for unknown indication
     Dosage: MOTHER DOSE: AT DOSE OF 200 MG PER DAYS VIA ORAL ROUTE FROM DEC-2023 TO SEP-2023 FOR 272 DAY.
     Route: 064
  3. SPIRIVA [Suspect]
     Active Substance: TIOTROPIUM BROMIDE MONOHYDRATE
     Indication: Product used for unknown indication
     Dosage: MOTHER DOSE: DOSAGE 1-2 UNITS PER DAY/2.5-5 G/D) FROM DEC-2023 TO SEP-2024 FOR 272 DAYS.
     Route: 064
  4. FEXOFENADINE HYDROCHLORIDE [Suspect]
     Active Substance: FEXOFENADINE HYDROCHLORIDE
     Indication: Product used for unknown indication
     Dosage: MOTHER D: AT DOSE OF 120 MILLIGRAM (AS NEEDED THROUGHOUT PREGNANCY) FROM DEC-2023 TO SEP-2024.
     Route: 064
  5. FLUTIFORM [Suspect]
     Active Substance: FLUTIFORM
     Indication: Product used for unknown indication
     Dosage: MOTHER DOSE: AT DOSE OF 125/5 MICROGRAM PER DAY FROM DEC-2023 TO SEP-2024 FOR 272 DAYS.
     Route: 064
  6. IPRATROPIUM [Suspect]
     Active Substance: IPRATROPIUM
     Indication: Product used for unknown indication
     Dosage: MOTHER DOSE: AT DOSE OF 250 MICROGRAM VIA INHALATION ROUTE FROM DEC-2023 TO SEP-2024 FOR 272 DAYS.
     Route: 064
  7. ELEXACAFTOR\IVACAFTOR\TEZACAFTOR [Suspect]
     Active Substance: ELEXACAFTOR\IVACAFTOR\TEZACAFTOR
     Indication: Product used for unknown indication
     Dosage: MOTHER D: AT DOSE OF 450 MILLIGRAM PER DAY FROM DEC-2023 TO SEP-2024
     Route: 064

REACTIONS (3)
  - Small for dates baby [Unknown]
  - Microcephaly [Unknown]
  - Foetal exposure during pregnancy [Unknown]

NARRATIVE: CASE EVENT DATE: 20240901
